FAERS Safety Report 14871139 (Version 2)
Quarter: 2018Q2

REPORT INFORMATION
  Report Type: Spontaneous
  Country: US (occurrence: US)
  Receive Date: 20180509
  Receipt Date: 20180529
  Transmission Date: 20180711
  Serious: Yes (Hospitalization, Other)
  Sender: FDA-Public Use
  Company Number: US-MYLANLABS-2018M1030738

PATIENT
  Age: 53 Year
  Sex: Male

DRUGS (2)
  1. ESTRADIOL. [Suspect]
     Active Substance: ESTRADIOL
     Dosage: 4 UNK, UNK
  2. ESTRADIOL. [Suspect]
     Active Substance: ESTRADIOL
     Indication: HORMONE REPLACEMENT THERAPY
     Dosage: 8 MG, QD

REACTIONS (7)
  - Cerebral infarction [Unknown]
  - Generalised tonic-clonic seizure [Unknown]
  - Visual impairment [Recovered/Resolved]
  - Injury [Unknown]
  - Cerebral venous thrombosis [Recovered/Resolved]
  - Fall [Unknown]
  - Cerebral microhaemorrhage [Unknown]
